FAERS Safety Report 18419228 (Version 2)
Quarter: 2020Q4

REPORT INFORMATION
  Report Type: Spontaneous
  Country: US (occurrence: US)
  Receive Date: 20201023
  Receipt Date: 20201106
  Transmission Date: 20210114
  Serious: No
  Sender: FDA-Public Use
  Company Number: US-HORIZON-2020HZN00096

PATIENT
  Age: 42 Year
  Sex: Female

DRUGS (3)
  1. SYNTHROIDSYNTHROIDLEVOTHYROXINE [Concomitant]
  2. SPRIONOLACTONESPIRONOLACTONESPIRONOLACTONE [Concomitant]
  3. TEPEZZA [Suspect]
     Active Substance: TEPROTUMUMAB-TRBW
     Indication: ENDOCRINE OPHTHALMOPATHY
     Dosage: 1380MG IV EVERY 3 WEEKS
     Route: 050
     Dates: start: 20200828

REACTIONS (1)
  - Amenorrhoea [Not Recovered/Not Resolved]

NARRATIVE: CASE EVENT DATE: 202009
